FAERS Safety Report 20618546 (Version 1)
Quarter: 2022Q1

REPORT INFORMATION
  Report Type: Spontaneous
  Country: CH (occurrence: CH)
  Receive Date: 20220321
  Receipt Date: 20220321
  Transmission Date: 20220423
  Serious: Yes (Hospitalization)
  Sender: FDA-Public Use
  Company Number: CH-ANIPHARMA-2022-CH-000011

PATIENT
  Age: 89 Year
  Sex: Female

DRUGS (9)
  1. ATACAND [Suspect]
     Active Substance: CANDESARTAN CILEXETIL
     Indication: Product used for unknown indication
     Dosage: 4 MG DAILY
     Route: 065
     Dates: start: 20210930, end: 20211221
  2. DIETARY SUPPLEMENT [Suspect]
     Active Substance: DIETARY SUPPLEMENT
     Dosage: 1X/DAY
     Route: 065
     Dates: start: 20210826, end: 20211221
  3. DIOSMIN\HESPERIDIN [Suspect]
     Active Substance: DIOSMIN\HESPERIDIN
     Dosage: 500 MG BID
     Route: 065
     Dates: start: 20210715, end: 20211221
  4. URISPAS [Suspect]
     Active Substance: FLAVOXATE HYDROCHLORIDE
     Dosage: 200 MG DAILY
     Route: 065
     Dates: start: 20211005, end: 20211223
  5. LIDOCAINE HYDROCHLORIDE\TOLPERISONE HYDROCHLORIDE [Suspect]
     Active Substance: LIDOCAINE HYDROCHLORIDE\TOLPERISONE HYDROCHLORIDE
     Dosage: 150 MG TID
     Route: 065
     Dates: start: 20211210, end: 20211221
  6. VOLTARENE [Concomitant]
     Route: 061
     Dates: start: 20211213, end: 20211221
  7. ECONAZOLE NITRATE [Concomitant]
     Active Substance: ECONAZOLE NITRATE
     Route: 061
     Dates: start: 20211213, end: 20211226
  8. CYANOCOBALAMIN [Concomitant]
     Active Substance: CYANOCOBALAMIN
     Route: 065
     Dates: start: 20211210, end: 20211210
  9. ACETAMINOPHEN [Concomitant]
     Active Substance: ACETAMINOPHEN
     Dosage: UNK, PRN
     Route: 065
     Dates: start: 20211220, end: 20211229

REACTIONS (2)
  - Cholestasis [Unknown]
  - Mixed liver injury [Unknown]

NARRATIVE: CASE EVENT DATE: 20211220
